FAERS Safety Report 7705554-5 (Version None)
Quarter: 2011Q3

REPORT INFORMATION
  Report Type: 
  Country: None (occurrence: None)
  Receive Date: 20110823
  Receipt Date: 20110823
  Transmission Date: 20111222
  Serious: Yes (Death)
  Sender: FDA-Public Use
  Company Number: None

PATIENT
  Age: 3 Year
  Sex: Male
  Weight: 16.2 kg

DRUGS (12)
  1. TYLENOL-500 [Concomitant]
  2. NEURONTIN [Concomitant]
  3. AMLODIPINE [Concomitant]
  4. ZOFRAN [Concomitant]
  5. PHENERGAN HCL [Concomitant]
  6. ATIVAN [Concomitant]
  7. METHADONE HCL [Concomitant]
  8. DILAUDID [Concomitant]
  9. CEFTRIAXONE [Concomitant]
  10. NIFURTIMOX 120 MG BAYER [Suspect]
     Indication: NEUROBLASTOMA
     Dosage: 600 MG, DIVIDED TID VIA G-TUBE
     Dates: start: 20110623, end: 20110722
  11. BACITRACIN [Concomitant]
  12. PREVACID [Concomitant]

REACTIONS (2)
  - NEUROBLASTOMA [None]
  - NEOPLASM PROGRESSION [None]
